FAERS Safety Report 25167620 (Version 1)
Quarter: 2025Q2

REPORT INFORMATION
  Report Type: Spontaneous
  Country: US (occurrence: None)
  Receive Date: 20250405
  Receipt Date: 20250405
  Transmission Date: 20250717
  Serious: Yes (Other)
  Sender: FDA-CTU
  Company Number: None

PATIENT
  Age: 36 Year
  Sex: Female
  Weight: 97.65 kg

DRUGS (7)
  1. ZEPBOUND [Suspect]
     Active Substance: TIRZEPATIDE
     Indication: Weight decreased
     Route: 058
     Dates: start: 20250310, end: 20250404
  2. ZEPBOUND [Suspect]
     Active Substance: TIRZEPATIDE
     Indication: Glycosylated haemoglobin
  3. LEXAPRO [Concomitant]
     Active Substance: ESCITALOPRAM OXALATE
  4. MAXALT [Concomitant]
     Active Substance: RIZATRIPTAN BENZOATE
  5. TOPAMAX [Concomitant]
     Active Substance: TOPIRAMATE
  6. Womans multivitamin [Concomitant]
  7. MELATONIN [Concomitant]
     Active Substance: MELATONIN

REACTIONS (8)
  - Abdominal pain upper [None]
  - Diarrhoea [None]
  - Vomiting [None]
  - Impaired work ability [None]
  - Feeling abnormal [None]
  - Feeding disorder [None]
  - Pancreatic disorder [None]
  - Blood test abnormal [None]

NARRATIVE: CASE EVENT DATE: 20250313
